FAERS Safety Report 6728752-6 (Version None)
Quarter: 2010Q2

REPORT INFORMATION
  Report Type: 
  Country: None (occurrence: None)
  Receive Date: 20100517
  Receipt Date: 20100219
  Transmission Date: 20101027
  Serious: No
  Sender: FDA-Public Use
  Company Number: US-ABBOTT-10P-163-0627587-00

PATIENT
  Sex: Female
  Weight: 86.26 kg

DRUGS (26)
  1. SIMCOR [Suspect]
     Indication: HIGH DENSITY LIPOPROTEIN DECREASED
     Dosage: 500MG/20MG
     Dates: start: 20090410
  2. SIMCOR [Suspect]
     Dosage: NIASPAN COATED
     Dates: start: 20100214
  3. NIASPAN [Suspect]
     Indication: HIGH DENSITY LIPOPROTEIN DECREASED
     Route: 048
     Dates: start: 20100214
  4. ASPIRIN [Concomitant]
     Indication: DRUG USE FOR UNKNOWN INDICATION
     Route: 048
  5. SYNTHROID [Concomitant]
     Indication: DRUG USE FOR UNKNOWN INDICATION
     Route: 048
  6. NEXIUM [Concomitant]
     Indication: DRUG USE FOR UNKNOWN INDICATION
     Route: 048
  7. ALLEGRA [Concomitant]
     Indication: DRUG USE FOR UNKNOWN INDICATION
     Route: 048
  8. SYMBICORT [Concomitant]
     Indication: DRUG USE FOR UNKNOWN INDICATION
     Dosage: 2 PUFFS X 160 MCG IN THE MORNING
     Route: 048
  9. PROVENTIL [Concomitant]
     Indication: DRUG USE FOR UNKNOWN INDICATION
     Route: 048
  10. SPIRIVA [Concomitant]
     Indication: DRUG USE FOR UNKNOWN INDICATION
     Route: 048
  11. LEXAPRO [Concomitant]
     Indication: DRUG USE FOR UNKNOWN INDICATION
     Route: 048
  12. ALLI [Concomitant]
     Indication: DRUG USE FOR UNKNOWN INDICATION
     Route: 048
  13. EEMT (LOW DOSE HORMONE) [Concomitant]
     Indication: DRUG USE FOR UNKNOWN INDICATION
     Route: 048
  14. CEREFOLIN NAC [Concomitant]
     Indication: DRUG USE FOR UNKNOWN INDICATION
     Route: 048
  15. CINACIA [Concomitant]
     Indication: DRUG USE FOR UNKNOWN INDICATION
     Dosage: 15% GEL
     Route: 061
  16. PROMETRIUM [Concomitant]
     Indication: DRUG USE FOR UNKNOWN INDICATION
     Route: 048
  17. RIGHT CHOICE VITAMINS [Concomitant]
     Indication: DRUG USE FOR UNKNOWN INDICATION
     Dosage: 3 IN THE MORNING AND 3 IN EVENING
     Route: 048
  18. LOVAZA [Concomitant]
     Indication: DRUG USE FOR UNKNOWN INDICATION
     Dosage: 1200MG X 3 PILLS DAILY
     Route: 048
  19. VITAMIN C [Concomitant]
     Indication: DRUG USE FOR UNKNOWN INDICATION
     Route: 048
  20. CALCIUM W/VITAMIN D [Concomitant]
     Indication: DRUG USE FOR UNKNOWN INDICATION
     Dosage: CALCIUM 750 W/VITAMIN D 600 MORNING AND EVENING
     Route: 048
  21. CRANBERRY EXTRACT [Concomitant]
     Indication: DRUG USE FOR UNKNOWN INDICATION
     Route: 048
  22. COQ10 [Concomitant]
     Indication: DRUG USE FOR UNKNOWN INDICATION
     Route: 048
  23. FLUOCINOLONE ACE [Concomitant]
     Indication: DRUG USE FOR UNKNOWN INDICATION
     Dosage: 0.01% ON SCALP TWICE DAILY
     Route: 061
  24. STOOL SOFTNER [Concomitant]
     Indication: DRUG USE FOR UNKNOWN INDICATION
     Route: 048
  25. GLYCERIN SUPP [Concomitant]
     Indication: DRUG USE FOR UNKNOWN INDICATION
     Route: 054
  26. BROVANA [Concomitant]
     Indication: ASTHMA
     Dosage: NEBULIZER WITH SEVERE ASTHMA ATTACK

REACTIONS (2)
  - FLUSHING [None]
  - PRURITUS [None]
